FAERS Safety Report 8953272 (Version 2)
Quarter: 2013Q1

REPORT INFORMATION
  Report Type: Spontaneous
  Country: IT (occurrence: IT)
  Receive Date: 20121206
  Receipt Date: 20130214
  Transmission Date: 20140127
  Serious: Yes (Hospitalization)
  Sender: FDA-Public Use
  Company Number: IT-BAYER-2012-125816

PATIENT
  Age: 66 Year
  Sex: Male

DRUGS (1)
  1. NEXAVAR [Suspect]
     Indication: HEPATIC NEOPLASM
     Dosage: DAILY DOSE 200 MG
     Dates: start: 20120101, end: 20120702

REACTIONS (1)
  - Pulmonary embolism [Not Recovered/Not Resolved]
